FAERS Safety Report 6162208-7 (Version None)
Quarter: 2009Q2

REPORT INFORMATION
  Report Type: 
  Country: None (occurrence: None)
  Receive Date: 20090417
  Receipt Date: 20090417
  Transmission Date: 20091009
  Serious: Yes (Other)
  Sender: FDA-Public Use
  Company Number: None

PATIENT
  Sex: Male
  Weight: 97.5234 kg

DRUGS (1)
  1. PRISTIQ [Suspect]
     Indication: DEPRESSION
     Dosage: 1 TABLET DAILY
     Dates: start: 20090310, end: 20090410

REACTIONS (8)
  - CONVULSION [None]
  - EPISTAXIS [None]
  - INSOMNIA [None]
  - MALE SEXUAL DYSFUNCTION [None]
  - MIGRAINE [None]
  - MUSCLE SPASMS [None]
  - PANIC ATTACK [None]
  - VOMITING [None]
